FAERS Safety Report 6265232-9 (Version None)
Quarter: 2009Q3

REPORT INFORMATION
  Report Type: 
  Country: None (occurrence: None)
  Receive Date: 20090709
  Receipt Date: 20090709
  Transmission Date: 20100115
  Serious: Yes (Other)
  Sender: FDA-Public Use
  Company Number: None

PATIENT
  Sex: Male
  Weight: 74.8435 kg

DRUGS (1)
  1. BACTRIM [Suspect]
     Indication: STAPHYLOCOCCAL INFECTION
     Dosage: 160 MG TAB 2 TAB/2X DAY MOUTH
     Route: 048
     Dates: start: 20090613

REACTIONS (4)
  - DYSPEPSIA [None]
  - HEADACHE [None]
  - HYPERHIDROSIS [None]
  - MENINGITIS ASEPTIC [None]
